FAERS Safety Report 10125965 (Version 2)
Quarter: 2014Q2

REPORT INFORMATION
  Report Type: Spontaneous
  Country: DE (occurrence: DE)
  Receive Date: 20140427
  Receipt Date: 20140427
  Transmission Date: 20141212
  Serious: Yes (Other)
  Sender: FDA-Public Use
  Company Number: PHHY2013DE154955

PATIENT
  Age: 65 Year
  Sex: Female
  Weight: 65 kg

DRUGS (7)
  1. AFINITOR [Suspect]
     Indication: BREAST CANCER
     Dosage: 5 MG, DAILY
     Dates: start: 20131113, end: 20131129
  2. AFINITOR [Suspect]
     Dosage: 10 MG, DAILY
     Dates: start: 20131130, end: 20140214
  3. EXEMESTAN [Concomitant]
     Indication: BREAST CANCER
  4. ENALAPRIL [Concomitant]
     Indication: HYPERTENSION
     Dosage: 10 MG, DAILY
  5. METFORMIN [Concomitant]
     Indication: TYPE 2 DIABETES MELLITUS
     Dosage: 1275 MG,  DAILY
  6. VITAMIN D3 [Concomitant]
  7. METOPROLOL [Concomitant]
     Indication: HYPERTENSION
     Dosage: 100 MG, DAILY

REACTIONS (6)
  - Concomitant disease aggravated [Unknown]
  - Tumour marker increased [Unknown]
  - Oral disorder [Not Recovered/Not Resolved]
  - Vaginal lesion [Not Recovered/Not Resolved]
  - Erythema [Recovering/Resolving]
  - Pruritus [Recovering/Resolving]
